FAERS Safety Report 23747999 (Version 1)
Quarter: 2024Q2

REPORT INFORMATION
  Report Type: Report from Study
  Country: CA (occurrence: None)
  Receive Date: 20240416
  Receipt Date: 20240416
  Transmission Date: 20240716
  Serious: Yes (Other)
  Sender: FDA-Public Use
  Company Number: 2024A090682

PATIENT
  Age: 73 Year
  Sex: Male

DRUGS (4)
  1. SYMBICORT [Suspect]
     Active Substance: BUDESONIDE\FORMOTEROL FUMARATE DIHYDRATE
     Indication: Asthma
     Dosage: 100MCG 2 INH BID
     Route: 055
  2. SINGULAIR [Concomitant]
     Active Substance: MONTELUKAST SODIUM
     Dosage: 1CO 10MG HS,
     Dates: start: 2021
  3. BREO ELLIPTA [Concomitant]
     Active Substance: FLUTICASONE FUROATE\VILANTEROL TRIFENATATE
     Dosage: 200/25MCG 1 INH DIE
     Dates: start: 202306
  4. PENICILLIN [Concomitant]
     Active Substance: PENICILLIN

REACTIONS (2)
  - Lung neoplasm malignant [Unknown]
  - Asthma [Unknown]

NARRATIVE: CASE EVENT DATE: 20210101
